FAERS Safety Report 11278698 (Version 1)
Quarter: 2015Q3

REPORT INFORMATION
  Report Type: Spontaneous
  Country: US (occurrence: US)
  Receive Date: 20150717
  Receipt Date: 20150717
  Transmission Date: 20151125
  Serious: No
  Sender: FDA-Public Use
  Company Number: US-BIOGENIDEC-2015BI097787

PATIENT
  Age: 39 Year
  Sex: Female

DRUGS (1)
  1. TECFIDERA [Suspect]
     Active Substance: DIMETHYL FUMARATE
     Indication: MULTIPLE SCLEROSIS
     Route: 048
     Dates: start: 20150202

REACTIONS (7)
  - Prescribed underdose [Unknown]
  - Pruritus [Unknown]
  - Generalised erythema [Unknown]
  - Rash papular [Unknown]
  - Decreased appetite [Unknown]
  - Flushing [Unknown]
  - Weight decreased [Unknown]

NARRATIVE: CASE EVENT DATE: 20150331
